FAERS Safety Report 7328316 (Version 6)
Quarter: 2015Q4

REPORT INFORMATION
  Report Type: Spontaneous
  Country: US (occurrence: US)
  Receive Date: 20100323
  Receipt Date: 20151204
  Transmission Date: 20160305
  Serious: Yes (Life-Threatening, Other)
  Sender: FDA-Public Use
  Company Number: US-BAYER-201016878NA

PATIENT
  Age: 29 Year
  Sex: Female
  Weight: 138 kg

DRUGS (5)
  1. AUGMENTIN [Concomitant]
     Active Substance: AMOXICILLIN\CLAVULANATE POTASSIUM
     Indication: COUGH
     Dates: start: 200811
  2. YASMIN [Suspect]
     Active Substance: DROSPIRENONE\ETHINYL ESTRADIOL
     Indication: PRODUCT USED FOR UNKNOWN INDICATION
     Dosage: UNK
     Route: 048
     Dates: start: 200802, end: 20080715
  3. AUGMENTIN [Concomitant]
     Active Substance: AMOXICILLIN\CLAVULANATE POTASSIUM
     Indication: CHEST PAIN
  4. AVELOX [Concomitant]
     Active Substance: MOXIFLOXACIN HYDROCHLORIDE
     Indication: PRODUCT USED FOR UNKNOWN INDICATION
     Dates: start: 2008
  5. OCELLA [Suspect]
     Active Substance: DROSPIRENONE\ETHINYL ESTRADIOL
     Indication: PRODUCT USED FOR UNKNOWN INDICATION
     Dosage: UNK
     Route: 048
     Dates: start: 200808, end: 20081215

REACTIONS (11)
  - Thrombosis [None]
  - Migraine [Unknown]
  - Menorrhagia [None]
  - Lung disorder [Not Recovered/Not Resolved]
  - Metrorrhagia [None]
  - Pneumonia [None]
  - Cough [None]
  - Fatigue [None]
  - Pulmonary embolism [None]
  - Chest pain [None]
  - Embolism arterial [None]

NARRATIVE: CASE EVENT DATE: 200808
